FAERS Safety Report 13240853 (Version 1)
Quarter: 2017Q1

REPORT INFORMATION
  Report Type: Spontaneous
  Country: US (occurrence: US)
  Receive Date: 20170216
  Receipt Date: 20170216
  Transmission Date: 20170428
  Serious: No
  Sender: FDA-Public Use
  Company Number: US-RELYPSA-RLY2016004329

PATIENT
  Sex: Male

DRUGS (1)
  1. VELTASSA [Suspect]
     Active Substance: PATIROMER
     Indication: BLOOD POTASSIUM
     Dosage: 8.4 G, PRN
     Route: 065
     Dates: end: 20161208

REACTIONS (2)
  - Inappropriate schedule of drug administration [Recovered/Resolved]
  - Blood potassium increased [Not Recovered/Not Resolved]
